FAERS Safety Report 7261085-0 (Version None)
Quarter: 2011Q1

REPORT INFORMATION
  Report Type: 
  Country: None (occurrence: None)
  Receive Date: 20110130
  Receipt Date: 20101228
  Transmission Date: 20110831
  Serious: No
  Sender: FDA-Public Use
  Company Number: US-ABBOTT-10P-163-0694212-00

PATIENT
  Age: 54 Year
  Sex: Female

DRUGS (7)
  1. OMEGA FISH OIL [Concomitant]
     Indication: PRODUCT USED FOR UNKNOWN INDICATION
  2. NAPROXEN [Concomitant]
     Indication: PAIN
  3. METFORMIN [Concomitant]
     Indication: DIABETES MELLITUS
  4. GLIPIZIDE [Concomitant]
     Indication: DIABETES MELLITUS
  5. GENEVIA [Concomitant]
     Indication: DIABETES MELLITUS
  6. HUMIRA [Suspect]
     Indication: PSORIASIS
     Dates: start: 20101215
  7. DIOVAN [Concomitant]
     Indication: HYPERTENSION

REACTIONS (1)
  - PSORIASIS [None]
